FAERS Safety Report 6131659-9 (Version None)
Quarter: 2009Q1

REPORT INFORMATION
  Report Type: 
  Country: None (occurrence: None)
  Receive Date: 20090325
  Receipt Date: 20090116
  Transmission Date: 20090719
  Serious: No
  Sender: FDA-Public Use
  Company Number: US-BRISTOL-MYERS SQUIBB COMPANY-14474902

PATIENT
  Age: 74 Year
  Sex: Male

DRUGS (3)
  1. ERBITUX [Suspect]
     Dosage: LOADING DOSE WAS 750MG
  2. CISPLATIN [Suspect]
  3. TAXOTERE [Suspect]

REACTIONS (1)
  - ADVERSE DRUG REACTION [None]
